FAERS Safety Report 5035295-7 (Version None)
Quarter: 2006Q2

REPORT INFORMATION
  Report Type: 
  Country: None (occurrence: None)
  Receive Date: 20060522
  Receipt Date: 20051117
  Transmission Date: 20061013
  Serious: Yes (Hospitalization, Other)
  Sender: FDA-Public Use
  Company Number: 2005162266

PATIENT
  Sex: Female
  Weight: 103 kg

DRUGS (13)
  1. GEODON [Suspect]
     Indication: ILL-DEFINED DISORDER
     Dosage: 120 MG (2 IN 1 D)
  2. GEODON [Suspect]
     Indication: SCHIZOPHRENIA
     Dosage: 120 MG (2 IN 1 D)
  3. KEPPRA [Concomitant]
  4. ACETAMINOPHEN [Concomitant]
  5. ASPIRIN [Concomitant]
  6. CALCIUM CARBONATE [Concomitant]
  7. VIT D [Concomitant]
  8. DONEPEZIL HCL [Concomitant]
  9. ENALAPRIL MALEATE [Concomitant]
  10. FAMOTIDINE [Concomitant]
  11. HUMULIN 70/30 [Concomitant]
  12. LEVETIRACETAM (KEPPRA) [Concomitant]
  13. GEODON [Concomitant]

REACTIONS (1)
  - CONVULSION [None]
